FAERS Safety Report 9650905 (Version 1)
Quarter: 2013Q4

REPORT INFORMATION
  Report Type: Spontaneous
  Country: US (occurrence: US)
  Receive Date: 20131029
  Receipt Date: 20131029
  Transmission Date: 20140711
  Serious: No
  Sender: FDA-Public Use
  Company Number: US-PFIZER INC-2013307872

PATIENT
  Sex: Female

DRUGS (14)
  1. LYRICA [Suspect]
     Dosage: UNK
  2. FAMOTIDINE [Suspect]
     Dosage: UNK
  3. LORATADINE [Suspect]
     Dosage: UNK
  4. MORPHINE SULFATE [Suspect]
     Dosage: UNK
  5. WELCHOL [Suspect]
     Dosage: UNK
  6. AMITIZA [Suspect]
     Dosage: UNK
  7. LORTAB [Suspect]
     Dosage: UNK
  8. MIRALAX [Suspect]
     Dosage: UNK
  9. ZEGERID [Suspect]
     Dosage: UNK
  10. AMITRIPTYLINE [Suspect]
     Dosage: UNK
  11. AMOXICILIN [Suspect]
     Dosage: UNK
  12. CLONAZEPAM [Suspect]
     Dosage: UNK
  13. OXYBUTYNIN [Suspect]
     Dosage: UNK
  14. LISINOPRIL [Suspect]
     Dosage: UNK

REACTIONS (4)
  - Gastrooesophageal reflux disease [Not Recovered/Not Resolved]
  - Vomiting [Unknown]
  - Nausea [Unknown]
  - Constipation [Unknown]
